FAERS Safety Report 9154958 (Version 1)
Quarter: 2013Q1

REPORT INFORMATION
  Report Type: Spontaneous
  Country: BR (occurrence: BR)
  Receive Date: 20130311
  Receipt Date: 20130311
  Transmission Date: 20140127
  Serious: Yes (Other)
  Sender: FDA-Public Use
  Company Number: BR-ROCHE-1199465

PATIENT
  Age: 77 Year
  Sex: 0

DRUGS (5)
  1. XELODA [Suspect]
     Indication: COLORECTAL CANCER
     Route: 065
  2. AVASTIN [Suspect]
     Indication: COLORECTAL CANCER
     Route: 065
  3. LEUCOVORIN [Suspect]
     Indication: COLORECTAL CANCER
     Route: 065
  4. FLUOROURACIL [Suspect]
     Indication: COLORECTAL CANCER
     Route: 065
  5. IRINOTECAN [Suspect]
     Indication: COLORECTAL CANCER
     Route: 065

REACTIONS (3)
  - Metastases to liver [Unknown]
  - Therapy responder [Unknown]
  - Thrombosis [Unknown]
